FAERS Safety Report 18595489 (Version 1)
Quarter: 2020Q4

REPORT INFORMATION
  Report Type: Spontaneous
  Country: US (occurrence: US)
  Receive Date: 20201209
  Receipt Date: 20201209
  Transmission Date: 20210114
  Serious: No
  Sender: FDA-Public Use
  Company Number: None

PATIENT
  Age: 81 Year
  Sex: Female
  Weight: 49.95 kg

DRUGS (5)
  1. PERCOCET [Concomitant]
     Active Substance: ACETAMINOPHEN\OXYCODONE HYDROCHLORIDE
  2. FENTANYL. [Concomitant]
     Active Substance: FENTANYL
  3. CAPECITABINE. [Suspect]
     Active Substance: CAPECITABINE
     Indication: CERVIX CARCINOMA
     Route: 048
     Dates: start: 20201117, end: 20201209
  4. SENNA LAXATIVE [Concomitant]
     Active Substance: SENNOSIDES
  5. COLACE [Concomitant]
     Active Substance: DOCUSATE SODIUM

REACTIONS (2)
  - Therapy cessation [None]
  - Hospice care [None]

NARRATIVE: CASE EVENT DATE: 20201209
